FAERS Safety Report 23876351 (Version 1)
Quarter: 2024Q2

REPORT INFORMATION
  Report Type: Spontaneous
  Country: US (occurrence: US)
  Receive Date: 20240520
  Receipt Date: 20240520
  Transmission Date: 20240716
  Serious: No
  Sender: FDA-Public Use
  Company Number: US-CIPLA LTD.-2024US02566

PATIENT

DRUGS (1)
  1. ALBUTEROL [Suspect]
     Active Substance: ALBUTEROL
     Indication: Asthma
     Dosage: 90 MICROGRAM, PRN (1 PUFF, EVERY 6 HOURS AS NEEDED)
     Dates: start: 202402

REACTIONS (4)
  - Drug ineffective [Unknown]
  - Device delivery system issue [Unknown]
  - Product container seal issue [Unknown]
  - Product cleaning inadequate [Unknown]

NARRATIVE: CASE EVENT DATE: 20240201
